FAERS Safety Report 6030348-9 (Version None)
Quarter: 2009Q1

REPORT INFORMATION
  Report Type: 
  Country: None (occurrence: None)
  Receive Date: 20090106
  Receipt Date: 20090106
  Transmission Date: 20090719
  Serious: Yes (Death, Hospitalization)
  Sender: FDA-Public Use
  Company Number: None

PATIENT
  Age: 41 Year
  Sex: Male
  Weight: 77.2 kg

DRUGS (2)
  1. TEMOZOLOMIDE [Suspect]
     Indication: ADENOID CYSTIC CARCINOMA
     Dosage: 400 MG QD DAY 1-5 PO
     Route: 048
     Dates: start: 20081117, end: 20081121
  2. BORTEZOMIB 1.3 MG/M2 [Suspect]
     Indication: ADENOID CYSTIC CARCINOMA
     Dosage: 2.65 MG QD DAYS 2, 5, 9, + 12 IV BOLUS
     Route: 040
     Dates: start: 20081118, end: 20081128

REACTIONS (1)
  - DYSPNOEA [None]
